FAERS Safety Report 8250862-5 (Version None)
Quarter: 2012Q2

REPORT INFORMATION
  Report Type: 
  Country: None (occurrence: None)
  Receive Date: 20120402
  Receipt Date: 20120328
  Transmission Date: 20120825
  Serious: Yes (Life-Threatening, Other)
  Sender: FDA-Public Use
  Company Number: PHHY2011IE107553

PATIENT
  Sex: Male
  Weight: 70 kg

DRUGS (27)
  1. MYFORTIC [Concomitant]
     Dosage: 180 MG, BID
  2. STERIMAR [Concomitant]
  3. MAGNESIUM [Concomitant]
  4. NEORAL [Suspect]
     Indication: RHEUMATOID ARTHRITIS
     Dosage: 150 MG, BID
  5. PROGRAF [Suspect]
  6. PREDNISOLONE [Concomitant]
  7. ALFACALCIDOL [Concomitant]
     Indication: RENAL FAILURE CHRONIC
  8. FUROSEMIDE [Concomitant]
     Indication: RENAL FAILURE CHRONIC
  9. MICERA [Concomitant]
     Indication: RENAL FAILURE CHRONIC
  10. NEORAL [Suspect]
     Indication: TRANSPLANT
  11. LANSOPRAZOLE [Concomitant]
  12. ALENDRONATE SODIUM [Concomitant]
  13. NYSTATIN [Concomitant]
  14. AZITHROMYCIN [Concomitant]
  15. SYMBICORT [Concomitant]
  16. VITAMIN D [Concomitant]
  17. TACROLIMUS [Suspect]
     Dosage: 1 DF, VARIABLE DOSE TARGET TROUGH 10-12
     Dates: start: 20110714
  18. SEPTIN [Concomitant]
  19. FOLIC ACID [Concomitant]
  20. FUNGIZONE [Concomitant]
  21. BICARBONATE [Concomitant]
     Indication: RENAL FAILURE CHRONIC
  22. TACROLIMUS [Suspect]
     Dosage: 1 DF, VARIABLE DOSE TARGET TROUGH 10-12
     Dates: start: 20101014
  23. CHLORHEXIDINE GLUCONATE [Concomitant]
  24. ATORVASTATIN [Concomitant]
  25. TOBI [Suspect]
     Indication: PSEUDOMONAS INFECTION
     Dosage: 300 MG, BID
     Dates: start: 20110906, end: 20111201
  26. CALCIUM CARBONATE [Concomitant]
  27. IMMUNOSUPPRESSANTS [Concomitant]

REACTIONS (7)
  - OEDEMA [None]
  - RASH [None]
  - RENAL IMPAIRMENT [None]
  - BLOOD CREATININE INCREASED [None]
  - TOXICITY TO VARIOUS AGENTS [None]
  - NEPHROPATHY TOXIC [None]
  - DEHYDRATION [None]
